FAERS Safety Report 10551647 (Version 2)
Quarter: 2015Q1

REPORT INFORMATION
  Report Type: Spontaneous
  Country: GB (occurrence: GB)
  Receive Date: 20141029
  Receipt Date: 20150113
  Transmission Date: 20150720
  Serious: Yes (Death, Hospitalization, Other)
  Sender: FDA-Public Use
  Company Number: GB-TEVA-516907ISR

PATIENT
  Age: 93 Year
  Sex: Female

DRUGS (1)
  1. ERYTHROMYCIN. [Suspect]
     Active Substance: ERYTHROMYCIN
     Indication: LOWER RESPIRATORY TRACT INFECTION
     Dosage: 1000 MILLIGRAM DAILY;
     Route: 048
     Dates: start: 20140831, end: 20140907

REACTIONS (4)
  - Lower respiratory tract infection [Fatal]
  - Drug ineffective [Unknown]
  - Incorrect dose administered [Unknown]
  - Glomerular filtration rate decreased [Unknown]
